FAERS Safety Report 9445718 (Version 2)
Quarter: 2013Q4

REPORT INFORMATION
  Report Type: Report from Study
  Country: KR (occurrence: KR)
  Receive Date: 20130807
  Receipt Date: 20131125
  Transmission Date: 20140711
  Serious: Yes (Death, Hospitalization)
  Sender: FDA-Public Use
  Company Number: KR-BRISTOL-MYERS SQUIBB COMPANY-18803767

PATIENT
  Age: 62 Year
  Sex: Female
  Weight: 30 kg

DRUGS (2)
  1. ERBITUX SOLN FOR INF [Suspect]
     Indication: COLON CANCER
     Route: 042
     Dates: start: 20090612, end: 20090612
  2. IRINOTECAN [Concomitant]
     Indication: METASTASES TO LIVER
     Dates: start: 20090612, end: 20090612

REACTIONS (2)
  - White blood cell count decreased [Fatal]
  - Neutrophil count decreased [Fatal]
